FAERS Safety Report 19721798 (Version 3)
Quarter: 2021Q4

REPORT INFORMATION
  Report Type: Spontaneous
  Country: ES (occurrence: ES)
  Receive Date: 20210818
  Receipt Date: 20211130
  Transmission Date: 20220303
  Serious: Yes (Other)
  Sender: FDA-Public Use
  Company Number: ES-CELLTRION INC.-2021ES010927

PATIENT

DRUGS (1)
  1. RITUXIMAB [Suspect]
     Active Substance: RITUXIMAB
     Indication: Progressive multiple sclerosis
     Dosage: UNK (BIANNUALLY)
     Route: 065
     Dates: start: 2014

REACTIONS (6)
  - Neutropenia [Recovered/Resolved]
  - Parvovirus B19 infection [Recovering/Resolving]
  - Beta 2 microglobulin increased [Unknown]
  - Lymphopenia [Unknown]
  - Product use in unapproved indication [Unknown]
  - Off label use [Unknown]
